FAERS Safety Report 13610222 (Version 2)
Quarter: 2019Q2

REPORT INFORMATION
  Report Type: Spontaneous
  Country: US (occurrence: US)
  Receive Date: 20170604
  Receipt Date: 20190625
  Transmission Date: 20190711
  Serious: No
  Sender: FDA-Public Use
  Company Number: US-BIOGEN-2017BI00407188

PATIENT
  Age: 6 Year
  Sex: Male

DRUGS (2)
  1. SPINRAZA [Suspect]
     Active Substance: NUSINERSEN
     Indication: SPINAL MUSCULAR ATROPHY
     Route: 037
     Dates: start: 20170412
  2. SPINRAZA [Suspect]
     Active Substance: NUSINERSEN
     Route: 037
     Dates: start: 20170510

REACTIONS (3)
  - Pyrexia [Recovered/Resolved]
  - Viral infection [Recovered/Resolved]
  - Seasonal allergy [Unknown]

NARRATIVE: CASE EVENT DATE: 20170515
